FAERS Safety Report 9986057 (Version 2)
Quarter: 2014Q1

REPORT INFORMATION
  Report Type: Spontaneous
  Country: DK (occurrence: DK)
  Receive Date: 20140307
  Receipt Date: 20140327
  Transmission Date: 20141002
  Serious: Yes (Other)
  Sender: FDA-Public Use
  Company Number: DK-VERTEX PHARMACEUTICALS INC-2014-001127

PATIENT
  Age: 67 Year
  Sex: Female

DRUGS (4)
  1. INCIVO [Suspect]
     Indication: HEPATITIS C
     Dosage: 1125 MG, UNK
     Dates: start: 20140112
  2. PEGINTRON [Concomitant]
     Indication: HEPATITIS C
     Dosage: 100 ?G, QW
     Route: 065
     Dates: start: 20140112
  3. COPEGUS [Concomitant]
     Indication: HEPATITIS C
     Dosage: UNK
     Route: 048
     Dates: start: 20140112
  4. COPEGUS [Concomitant]
     Dosage: 200 MG, UNK
     Route: 048
     Dates: start: 20140207

REACTIONS (1)
  - Cataract [Not Recovered/Not Resolved]
